FAERS Safety Report 21509819 (Version 1)
Quarter: 2022Q4

REPORT INFORMATION
  Report Type: Spontaneous
  Country: US (occurrence: US)
  Receive Date: 20221026
  Receipt Date: 20221026
  Transmission Date: 20230112
  Serious: No
  Sender: FDA-Public Use
  Company Number: US-MYLANLABS-2022M1096087

PATIENT
  Sex: Female
  Weight: 79.38 kg

DRUGS (2)
  1. SEMGLEE (INSULIN GLARGINE-YFGN) [Suspect]
     Active Substance: INSULIN GLARGINE-YFGN
     Indication: Diabetes mellitus
     Dosage: 80 INTERNATIONAL UNIT, QD (ONCE A DAY TOTAL OF 80 UNITS )
     Route: 058
  2. SEMGLEE (INSULIN GLARGINE-YFGN) [Suspect]
     Active Substance: INSULIN GLARGINE-YFGN
     Dosage: 80 INTERNATIONAL UNIT, QD (ONCE A DAY TOTAL OF 80 UNITS )
     Route: 058

REACTIONS (3)
  - Lipohypertrophy [Unknown]
  - Injection site atrophy [Unknown]
  - Device mechanical issue [Unknown]
